FAERS Safety Report 8249536 (Version 4)
Quarter: 2012Q4

REPORT INFORMATION
  Report Type: Report from Study
  Country: US (occurrence: US)
  Receive Date: 20111117
  Receipt Date: 20121205
  Transmission Date: 20130627
  Serious: Yes (Hospitalization)
  Sender: FDA-Public Use
  Company Number: US-UCBSA-045542

PATIENT
  Age: 57 Year
  Sex: Male
  Weight: 106.59 kg

DRUGS (20)
  1. ROTIGOTINE [Suspect]
     Indication: PARKINSON^S DISEASE
     Route: 062
     Dates: start: 20090112
  2. JANUVIA [Concomitant]
     Indication: DIABETES MELLITUS
     Dates: start: 2008
  3. METFORMIN [Concomitant]
     Indication: DIABETES MELLITUS
     Dates: start: 2008
  4. SINEMET ER [Concomitant]
     Indication: PARKINSON^S DISEASE
     Dosage: 50/200 1 tab 5 times daily
     Dates: start: 200608
  5. TRICOR [Concomitant]
     Indication: HYPERLIPIDAEMIA
     Dates: start: 200504
  6. PRILOSEC [Concomitant]
     Indication: GASTROOESOPHAGEAL REFLUX DISEASE
     Dates: start: 1998
  7. IBUPROFEN [Concomitant]
     Indication: MUSCLE SPASMS
     Dates: start: 200504
  8. SEROQUEL [Concomitant]
     Indication: ABNORMAL DREAMS
     Dates: start: 200502
  9. SINEMET [Concomitant]
     Indication: PARKINSON^S DISEASE
     Dosage: 25/100 ONE TAB AS NECESSARY
     Dates: start: 2004
  10. RAMIPRIL [Concomitant]
     Indication: LEFT VENTRICULAR DYSFUNCTION
     Dates: start: 2009
  11. RAMIPRIL [Concomitant]
     Indication: LEFT VENTRICULAR DYSFUNCTION
     Dates: start: 20090127, end: 2009
  12. ASPIRIN [Concomitant]
     Indication: CARDIOVASCULAR EVENT PROPHYLAXIS
     Dates: start: 20090127
  13. GLIPIZIDE [Concomitant]
     Indication: DIABETES MELLITUS
     Dates: start: 201012
  14. GLIPIZIDE [Concomitant]
     Indication: DIABETES MELLITUS
     Dates: start: 200504, end: 201012
  15. ACTOS [Concomitant]
     Indication: DIABETES MELLITUS
     Dosage: ONCE DAILY
     Dates: start: 201103
  16. BACLOFEN [Concomitant]
     Indication: MUSCLE SPASMS
     Dates: start: 2010
  17. BACLOFEN [Concomitant]
     Indication: MUSCLE SPASMS
     Dates: start: 2001, end: 20090319
  18. LEXAPRO [Concomitant]
     Indication: DEPRESSION
     Dosage: 10-20 MG ONCE DAILY
     Dates: start: 20091210
  19. MVI [Concomitant]
     Indication: PROPHYLAXIS
     Dosage: 1 TAB QD
     Dates: start: 2011
  20. VIT D [Concomitant]
     Indication: PROPHYLAXIS
     Dates: start: 2011

REACTIONS (2)
  - Spinal fusion surgery [Recovered/Resolved]
  - Infection [Not Recovered/Not Resolved]
